FAERS Safety Report 12416763 (Version 1)
Quarter: 2016Q2

REPORT INFORMATION
  Report Type: Spontaneous
  Country: US (occurrence: US)
  Receive Date: 20160530
  Receipt Date: 20160530
  Transmission Date: 20160815
  Serious: No
  Sender: FDA-Public Use
  Company Number: US-WEST-WARD PHARMACEUTICALS CORP.-US-H14001-15-01602

PATIENT
  Age: 73 Year
  Sex: Male
  Weight: 72.64 kg

DRUGS (4)
  1. TESTOSTERONE CYPIONATE INJECTION USP [Suspect]
     Active Substance: TESTOSTERONE CYPIONATE
     Indication: HYPOGONADISM
     Route: 065
     Dates: start: 201508
  2. TESTOSTERONE CYPIONATE INJECTION USP [Suspect]
     Active Substance: TESTOSTERONE CYPIONATE
     Route: 065
  3. TESTOSTERONE CYPIONATE. [Concomitant]
     Active Substance: TESTOSTERONE CYPIONATE
     Route: 065
     Dates: start: 2015, end: 2015
  4. TESTOSTERONE CYPIONATE. [Concomitant]
     Active Substance: TESTOSTERONE CYPIONATE
     Indication: HYPOGONADISM
     Route: 065
     Dates: start: 201506, end: 2015

REACTIONS (5)
  - Insomnia [Recovered/Resolved]
  - Drug ineffective [Recovered/Resolved]
  - Injection site pain [Recovered/Resolved]
  - Discomfort [Recovered/Resolved]
  - Incorrect dose administered [Recovered/Resolved]

NARRATIVE: CASE EVENT DATE: 201508
